FAERS Safety Report 9702869 (Version 1)
Quarter: 2013Q4

REPORT INFORMATION
  Report Type: Spontaneous
  Country: US (occurrence: None)
  Receive Date: 20131120
  Receipt Date: 20131120
  Transmission Date: 20140711
  Serious: Yes (Hospitalization, Other)
  Sender: FDA-Public Use
  Company Number: 2013-003618

PATIENT
  Age: 65 Year
  Sex: Male

DRUGS (2)
  1. MESALAZINE [Suspect]
     Indication: COLITIS ULCERATIVE
     Route: 048
  2. NSAID^S [Concomitant]

REACTIONS (6)
  - Acute respiratory failure [None]
  - Interstitial lung disease [None]
  - Anxiety [None]
  - Pallor [None]
  - Platelet count decreased [None]
  - Blood creatine decreased [None]
